FAERS Safety Report 22100646 (Version 3)
Quarter: 2025Q2

REPORT INFORMATION
  Report Type: Spontaneous
  Country: US (occurrence: US)
  Receive Date: 20230316
  Receipt Date: 20250417
  Transmission Date: 20250716
  Serious: Yes (Hospitalization, Other)
  Sender: AUROBINDO
  Company Number: US-AUROBINDO-AUR-APL-2023-005732

PATIENT
  Age: 12 Year
  Sex: Female

DRUGS (6)
  1. NORETHINDRONE [Interacting]
     Active Substance: NORETHINDRONE
     Indication: Heavy menstrual bleeding
     Route: 048
  2. WARFARIN [Interacting]
     Active Substance: WARFARIN
     Indication: Cardiac valve disease
     Dosage: 42 MILLIGRAM, EVERY WEEK
     Route: 048
  3. WARFARIN [Interacting]
     Active Substance: WARFARIN
     Dosage: 21 MILLIGRAM, EVERY WEEK
     Route: 048
  4. LISINOPRIL [Concomitant]
     Active Substance: LISINOPRIL
     Indication: Product used for unknown indication
     Route: 065
  5. ASPIRIN [Concomitant]
     Active Substance: ASPIRIN
     Indication: Product used for unknown indication
     Route: 065
  6. PENICILLIN [Concomitant]
     Active Substance: PENICILLIN
     Indication: Prophylaxis
     Route: 065

REACTIONS (5)
  - Heavy menstrual bleeding [Recovered/Resolved]
  - Epistaxis [Recovered/Resolved]
  - Anaemia [Recovered/Resolved]
  - Drug interaction [Unknown]
  - International normalised ratio increased [Recovering/Resolving]
